FAERS Safety Report 17439460 (Version 2)
Quarter: 2020Q1

REPORT INFORMATION
  Report Type: Spontaneous
  Country: AU (occurrence: AU)
  Receive Date: 20200220
  Receipt Date: 20200227
  Transmission Date: 20200409
  Serious: Yes (Congenital Anomaly, Other)
  Sender: FDA-Public Use
  Company Number: AU-BEH-2020113327

PATIENT
  Sex: Male
  Weight: 2.61 kg

DRUGS (2)
  1. HUMAN IMMUNOGLOBULIN (INN) [Suspect]
     Active Substance: HUMAN IMMUNOGLOBULIN G
     Indication: THROMBOCYTOPENIA
     Route: 042
  2. NATALIZUMAB [Suspect]
     Active Substance: NATALIZUMAB
     Indication: PRODUCT USED FOR UNKNOWN INDICATION
     Dosage: 7 DOSES TOTAL
     Route: 065

REACTIONS (7)
  - Double outlet right ventricle [Recovered/Resolved]
  - Thrombocytopenia neonatal [Recovered/Resolved]
  - Product use in unapproved indication [Unknown]
  - Aorta hypoplasia [Recovered/Resolved]
  - No adverse event [Unknown]
  - Maternal exposure during pregnancy [Recovered/Resolved]
  - Ventricular septal defect [Recovered/Resolved]
